FAERS Safety Report 5985554-6 (Version None)
Quarter: 2008Q4

REPORT INFORMATION
  Report Type: 
  Country: None (occurrence: None)
  Receive Date: 20081208
  Receipt Date: 20080325
  Transmission Date: 20090506
  Serious: No
  Sender: FDA-Public Use
  Company Number: US-AMGEN-KDL268248

PATIENT
  Sex: Male
  Weight: 84 kg

DRUGS (5)
  1. ENBREL [Suspect]
     Indication: PSORIASIS
     Route: 058
     Dates: start: 20080228
  2. ASCORBIC ACID [Concomitant]
  3. VITAMIN E [Concomitant]
  4. ASPIRIN [Concomitant]
  5. GARLIC [Concomitant]

REACTIONS (5)
  - DYSPNOEA [None]
  - FATIGUE [None]
  - GASTROENTERITIS VIRAL [None]
  - INSOMNIA [None]
  - RASH [None]
